FAERS Safety Report 17827889 (Version 2)
Quarter: 2020Q2

REPORT INFORMATION
  Report Type: Spontaneous
  Country: US (occurrence: US)
  Receive Date: 20200527
  Receipt Date: 20200618
  Transmission Date: 20200714
  Serious: No
  Sender: FDA-Public Use
  Company Number: US-SA-2020SA134124

PATIENT

DRUGS (1)
  1. DUPIXENT [Suspect]
     Active Substance: DUPILUMAB
     Indication: PRODUCT USED FOR UNKNOWN INDICATION
     Dosage: 300 MG, QOW
     Route: 058
     Dates: start: 20200424

REACTIONS (4)
  - Eye irritation [Unknown]
  - Eye pruritus [Unknown]
  - Product dose omission [Unknown]
  - Dry eye [Unknown]

NARRATIVE: CASE EVENT DATE: 2020
